FAERS Safety Report 15986506 (Version 1)
Quarter: 2019Q1

REPORT INFORMATION
  Report Type: Spontaneous
  Country: SA (occurrence: SA)
  Receive Date: 20190220
  Receipt Date: 20190220
  Transmission Date: 20190418
  Serious: Yes (Life-Threatening, Disabling)
  Sender: FDA-Public Use
  Company Number: None

PATIENT

DRUGS (2)
  1. MIDAZOLAM [Suspect]
     Active Substance: MIDAZOLAM HYDROCHLORIDE
  2. FENTANYL. [Suspect]
     Active Substance: FENTANYL

REACTIONS (3)
  - Hypersensitivity [None]
  - Adverse drug reaction [None]
  - Unresponsive to stimuli [None]
